FAERS Safety Report 6372509-5 (Version None)
Quarter: 2009Q3

REPORT INFORMATION
  Report Type: 
  Country: None (occurrence: None)
  Receive Date: 20090924
  Receipt Date: 20081107
  Transmission Date: 20100115
  Serious: Yes (Hospitalization)
  Sender: FDA-Public Use
  Company Number: US-ASTRAZENECA-2008UW18933

PATIENT
  Age: 17356 Day

DRUGS (4)
  1. SEROQUEL [Suspect]
     Dosage: 300 MG
     Route: 048
     Dates: start: 20070802
  2. ABILIFY [Concomitant]
     Dosage: 5 MG 1/2 TABLET EVERY OTHER MORNING
  3. LEXAPRO [Concomitant]
     Dosage: 20 MG TWO CAPSULES EVERY DAY
  4. XANAX [Concomitant]
     Dosage: 0.5 MG ONE TO TWO TABLETS EVERY DAY

REACTIONS (1)
  - PANCREATITIS [None]
